FAERS Safety Report 9275976 (Version 1)
Quarter: 2013Q2

REPORT INFORMATION
  Report Type: Spontaneous
  Country: US (occurrence: US)
  Receive Date: 20130507
  Receipt Date: 20130507
  Transmission Date: 20140414
  Serious: No
  Sender: FDA-Public Use
  Company Number: US-PFIZER INC-2013138527

PATIENT
  Sex: Female

DRUGS (1)
  1. ADVIL [Suspect]
     Indication: FRACTURE PAIN
     Dosage: 6 TABLETS, UNK
     Route: 048
     Dates: start: 2013

REACTIONS (1)
  - Nausea [Unknown]
